FAERS Safety Report 4648723-3 (Version None)
Quarter: 2005Q2

REPORT INFORMATION
  Report Type: 
  Country: None (occurrence: None)
  Receive Date: 20050427
  Receipt Date: 20050407
  Transmission Date: 20051028
  Serious: Yes (Other)
  Sender: FDA-Public Use
  Company Number: USA050495198

PATIENT
  Sex: Female
  Weight: 84 kg

DRUGS (1)
  1. CYMBALTA [Suspect]
     Indication: FIBROMYALGIA
     Dosage: 60 MG DAY
     Dates: start: 20050222, end: 20050329

REACTIONS (5)
  - DIZZINESS [None]
  - DYSARTHRIA [None]
  - DYSSTASIA [None]
  - FALL [None]
  - VERTIGO [None]
